FAERS Safety Report 7364296-9 (Version None)
Quarter: 2011Q1

REPORT INFORMATION
  Report Type: 
  Country: None (occurrence: None)
  Receive Date: 20110321
  Receipt Date: 20110310
  Transmission Date: 20110831
  Serious: Yes (Disabling)
  Sender: FDA-Public Use
  Company Number: B0706106A

PATIENT
  Age: 38 Year
  Sex: Female
  Weight: 84 kg

DRUGS (2)
  1. BEVACIZUMAB [Concomitant]
     Indication: OVARIAN NEOPLASM
     Dosage: 400MG CYCLIC
     Route: 042
     Dates: start: 20101203
  2. HYCAMTIN [Suspect]
     Indication: OVARIAN NEOPLASM
     Dosage: 4MG CYCLIC
     Route: 042
     Dates: start: 20101203

REACTIONS (2)
  - PAIN IN EXTREMITY [None]
  - GAIT DISTURBANCE [None]
